FAERS Safety Report 10467862 (Version 5)
Quarter: 2016Q4

REPORT INFORMATION
  Report Type: Spontaneous
  Country: JP (occurrence: JP)
  Receive Date: 20140922
  Receipt Date: 20161114
  Transmission Date: 20170206
  Serious: Yes (Life-Threatening, Hospitalization)
  Sender: FDA-Public Use
  Company Number: PHHY2014JP100127

PATIENT
  Age: 44 Year
  Sex: Female
  Weight: 65 kg

DRUGS (10)
  1. VESICARE [Concomitant]
     Active Substance: SOLIFENACIN SUCCINATE
     Indication: HYPERTONIC BLADDER
     Dosage: 5 MG, BID
     Route: 048
     Dates: start: 20100606
  2. MOHRUS [Concomitant]
     Active Substance: KETOPROFEN
     Indication: MUSCULOSKELETAL PAIN
     Dosage: 20 MG, QD
     Route: 061
     Dates: start: 20101224
  3. MECOBALAMIN [Concomitant]
     Active Substance: METHYLCOBALAMIN
     Indication: CARPAL TUNNEL SYNDROME
     Dosage: 500 UG, TID
     Route: 048
     Dates: start: 20101001
  4. BIO-THREE [Concomitant]
     Active Substance: HERBALS
     Indication: DIARRHOEA
     Dosage: 1 DF, TID
     Route: 048
     Dates: start: 20140308
  5. IMUSERA [Suspect]
     Active Substance: FINGOLIMOD HYDROCHLORIDE
     Dosage: 0.5 MG, QOD
     Route: 048
     Dates: start: 20140814
  6. IMUSERA [Suspect]
     Active Substance: FINGOLIMOD HYDROCHLORIDE
     Indication: MULTIPLE SCLEROSIS
     Dosage: UNK, 5 DAYS A WEEK
     Route: 048
     Dates: start: 20130806, end: 20140704
  7. IMUSERA [Suspect]
     Active Substance: FINGOLIMOD HYDROCHLORIDE
     Dosage: 0.5 MG, 5 DAYS A WEEK
     Route: 048
     Dates: start: 20130819
  8. METHYCOOL [Concomitant]
     Active Substance: METHYLCOBALAMIN
     Indication: CARPAL TUNNEL SYNDROME
     Dosage: 500 UG, TID
     Route: 048
     Dates: start: 20101001
  9. JUVELA [Concomitant]
     Active Substance: .ALPHA.-TOCOPHEROL\RETINOL
     Indication: PERIPHERAL VASCULAR DISORDER
     Dosage: UNK
     Route: 048
  10. IMUSERA [Suspect]
     Active Substance: FINGOLIMOD HYDROCHLORIDE
     Dosage: UNK, 5 DAYS A WEEK
     Route: 048
     Dates: start: 20140705, end: 20140805

REACTIONS (5)
  - Hepatic function abnormal [Not Recovered/Not Resolved]
  - Ovarian cancer [Unknown]
  - Herpes zoster [Recovering/Resolving]
  - Neutropenia [Recovered/Resolved]
  - Leukopenia [Recovered/Resolved]

NARRATIVE: CASE EVENT DATE: 20140803
